FAERS Safety Report 4751528-6 (Version None)
Quarter: 2005Q3

REPORT INFORMATION
  Report Type: 
  Country: None (occurrence: None)
  Receive Date: 20050824
  Receipt Date: 20050603
  Transmission Date: 20060218
  Serious: Yes (Hospitalization)
  Sender: FDA-Public Use
  Company Number: FR-MERCK-0506FRA00017

PATIENT
  Age: 73 Year
  Sex: Female

DRUGS (6)
  1. PRIMAXIN [Suspect]
     Indication: INFECTION
     Route: 042
     Dates: start: 20050305, end: 20050312
  2. CIPROFLOXACIN [Suspect]
     Indication: INFECTION
     Route: 042
     Dates: start: 20050305, end: 20050312
  3. NICARDIPINE HYDROCHLORIDE [Concomitant]
     Indication: HYPERTENSION
     Route: 048
  4. URAPIDIL [Concomitant]
     Indication: HYPERTENSION
     Route: 048
  5. TACROLIMUS [Concomitant]
     Indication: LIVER TRANSPLANT
     Route: 048
  6. CANDESARTAN [Concomitant]
     Indication: HYPERTENSION
     Route: 048

REACTIONS (3)
  - CONVULSION [None]
  - JOINT DISLOCATION PATHOLOGICAL [None]
  - UPPER LIMB FRACTURE [None]
